FAERS Safety Report 8941424 (Version 1)
Quarter: 2012Q4

REPORT INFORMATION
  Report Type: 
  Country: DK (occurrence: DK)
  Receive Date: 20121203
  Receipt Date: 20121203
  Transmission Date: 20130627
  Serious: Yes (Hospitalization)
  Sender: FDA-Public Use
  Company Number: DK-MYLANLABS-2012S1024554

PATIENT
  Age: 51 Year
  Sex: Female

DRUGS (2)
  1. TAMOXIFEN [Suspect]
     Indication: BREAST CANCER STAGE II
     Dosage: DOSIS: 1 tabl. dagligt
     Dates: start: 20011120, end: 20040322
  2. ANASTROZOLE [Suspect]
     Indication: BREAST CANCER STAGE II
     Dates: start: 2004, end: 200611

REACTIONS (4)
  - Cervix carcinoma [Recovered/Resolved]
  - Weight increased [Unknown]
  - Hot flush [Unknown]
  - Poor quality sleep [Unknown]
